FAERS Safety Report 4585664-4 (Version None)
Quarter: 2005Q1

REPORT INFORMATION
  Report Type: 
  Country: None (occurrence: None)
  Receive Date: 20050214
  Receipt Date: 20050201
  Transmission Date: 20050727
  Serious: Yes (Hospitalization)
  Sender: FDA-Public Use
  Company Number: THYM-10412

PATIENT
  Age: 36 Year
  Sex: Female
  Weight: 56 kg

DRUGS (15)
  1. THYMOGLOBULIN [Suspect]
     Indication: PANCREAS TRANSPLANT REJECTION
     Dosage: 75 MG IV
     Route: 042
  2. THYMOGLOBULIN [Suspect]
     Indication: PANCREAS TRANSPLANT REJECTION
     Dosage: 100 MG IV
     Route: 042
     Dates: start: 20041104
  3. RAPAMUNE [Concomitant]
  4. CELLCEPT [Concomitant]
  5. ASPIRIN [Concomitant]
  6. ZOCOR [Concomitant]
  7. MULTI-VITAMIN [Concomitant]
  8. VALCYTE [Concomitant]
  9. NYSTATIN [Concomitant]
  10. ACETAMINOPHEN [Concomitant]
  11. BENADRYL [Concomitant]
  12. HEPARIN [Concomitant]
  13. SODIUM CHLORIDE [Concomitant]
  14. OVCON-35 [Concomitant]
  15. ELMIRON [Concomitant]

REACTIONS (2)
  - NAUSEA [None]
  - VOMITING [None]
